FAERS Safety Report 20378506 (Version 1)
Quarter: 2022Q1

REPORT INFORMATION
  Report Type: Spontaneous
  Country: US (occurrence: US)
  Receive Date: 20220126
  Receipt Date: 20220126
  Transmission Date: 20220424
  Serious: No
  Sender: FDA-Public Use
  Company Number: US-RVL_Pharmaceuticals-USA-POI1255202100051

PATIENT
  Age: 64 Year
  Sex: Female

DRUGS (1)
  1. UPNEEQ [Suspect]
     Active Substance: OXYMETAZOLINE HYDROCHLORIDE
     Indication: Eyelid ptosis
     Dosage: OU
     Route: 047
     Dates: start: 20211014, end: 20211014

REACTIONS (4)
  - Eyelid rash [Recovering/Resolving]
  - Rash [Recovering/Resolving]
  - Abnormal sensation in eye [Recovered/Resolved]
  - Tension headache [Recovering/Resolving]

NARRATIVE: CASE EVENT DATE: 20211014
